FAERS Safety Report 26185444 (Version 2)
Quarter: 2025Q4

REPORT INFORMATION
  Report Type: Spontaneous
  Country: US (occurrence: US)
  Receive Date: 20251222
  Receipt Date: 20251222
  Transmission Date: 20260118
  Serious: Yes (Other)
  Sender: ROCHE
  Company Number: US-ROCHE-10000465037

PATIENT
  Age: 6 Decade
  Sex: Female

DRUGS (4)
  1. ENTRECTINIB [Suspect]
     Active Substance: ENTRECTINIB
     Indication: Squamous cell carcinoma
  2. HYDROXYUREA [Concomitant]
     Active Substance: HYDROXYUREA
  3. RASBURICASE [Concomitant]
     Active Substance: RASBURICASE
  4. CRIZOTINIB [Concomitant]
     Active Substance: CRIZOTINIB

REACTIONS (3)
  - Ataxia [Unknown]
  - Acute kidney injury [Unknown]
  - Dysarthria [Unknown]
